FAERS Safety Report 9736124 (Version 1)
Quarter: 2013Q4

REPORT INFORMATION
  Report Type: Spontaneous
  Country: US (occurrence: US)
  Receive Date: 20131206
  Receipt Date: 20131206
  Transmission Date: 20140711
  Serious: No
  Sender: FDA-Public Use
  Company Number: US-GILEAD-2013-0089193

PATIENT
  Age: 75 Year
  Sex: Female

DRUGS (11)
  1. LETAIRIS [Suspect]
     Indication: PULMONARY HYPERTENSION
     Dosage: 5 MG, QD
     Route: 048
     Dates: start: 20131108, end: 20131125
  2. LIPITOR [Concomitant]
  3. SYNTHROID [Concomitant]
  4. XARELTO [Concomitant]
  5. ATENOLOL [Concomitant]
  6. ASPIRIN [Concomitant]
  7. NITROSTAT [Concomitant]
  8. LORCET                             /00607101/ [Concomitant]
  9. CO Q 10                            /00517201/ [Concomitant]
  10. VITAMIN D AND B12 [Concomitant]
  11. FLAXSEED OIL [Concomitant]

REACTIONS (3)
  - Rash [Recovered/Resolved]
  - Local swelling [Recovered/Resolved]
  - Dyspnoea [Recovered/Resolved]
